FAERS Safety Report 17200338 (Version 5)
Quarter: 2023Q1

REPORT INFORMATION
  Report Type: Spontaneous
  Country: US (occurrence: None)
  Receive Date: 20191226
  Receipt Date: 20230227
  Transmission Date: 20230417
  Serious: Yes (Hospitalization, Other)
  Sender: FDA-Public Use
  Company Number: 2019SE10813

PATIENT
  Age: 22152 Day
  Sex: Female

DRUGS (37)
  1. NEXIUM [Suspect]
     Active Substance: ESOMEPRAZOLE MAGNESIUM
     Indication: Gastrooesophageal reflux disease
     Route: 048
     Dates: start: 2002, end: 2015
  2. NEXIUM [Suspect]
     Active Substance: ESOMEPRAZOLE MAGNESIUM
     Indication: Gastrooesophageal reflux disease
     Route: 048
     Dates: start: 20150713
  3. NEXIUM 24HR [Suspect]
     Active Substance: ESOMEPRAZOLE MAGNESIUM
     Indication: Gastrooesophageal reflux disease
     Route: 048
     Dates: start: 2002, end: 2015
  4. PRILOSEC [Suspect]
     Active Substance: OMEPRAZOLE MAGNESIUM
     Indication: Gastrooesophageal reflux disease
     Route: 048
     Dates: start: 2002, end: 2015
  5. PREVACID [Suspect]
     Active Substance: LANSOPRAZOLE
     Indication: Gastrooesophageal reflux disease
     Route: 065
  6. PREVACID [Suspect]
     Active Substance: LANSOPRAZOLE
     Indication: Gastrooesophageal reflux disease
     Dosage: LANSOPRAZOLE
     Route: 065
     Dates: start: 20160809
  7. PREVACID [Suspect]
     Active Substance: LANSOPRAZOLE
     Indication: Gastrooesophageal reflux disease
     Dosage: LANSOPRAZOLE
     Route: 048
     Dates: start: 20160819
  8. PANTOPRAZOLE [Suspect]
     Active Substance: PANTOPRAZOLE
     Indication: Gastrooesophageal reflux disease
     Route: 065
     Dates: start: 2015, end: 2016
  9. PANTOPRAZOLE [Suspect]
     Active Substance: PANTOPRAZOLE
     Indication: Gastrooesophageal reflux disease
     Dosage: PROTONIX
     Route: 048
     Dates: start: 20150701
  10. AMLODIPINE [Concomitant]
     Active Substance: AMLODIPINE BESYLATE
     Route: 048
     Dates: start: 20141223, end: 20150713
  11. AMLODIPINE [Concomitant]
     Active Substance: AMLODIPINE BESYLATE
     Route: 048
     Dates: start: 20150713
  12. LOSARTAN [Concomitant]
     Active Substance: LOSARTAN
     Indication: Hypertension
     Route: 065
     Dates: start: 2015, end: 2016
  13. LOSARTAN [Concomitant]
     Active Substance: LOSARTAN
     Indication: Hypertension
     Route: 048
     Dates: start: 20150713
  14. FUROSEMIDE [Concomitant]
     Active Substance: FUROSEMIDE
     Indication: Cardiac disorder
     Route: 065
     Dates: start: 2015, end: 2016
  15. QUINAPRIL [Concomitant]
     Active Substance: QUINAPRIL
     Indication: Hypertension
     Route: 065
     Dates: start: 20150116
  16. SIMVASTATIN [Concomitant]
     Active Substance: SIMVASTATIN
     Indication: Cardiac disorder
     Route: 065
     Dates: start: 20150102
  17. INDOMETHACIN [Concomitant]
     Active Substance: INDOMETHACIN
     Indication: Pain
     Route: 065
     Dates: start: 2012, end: 2013
  18. AMOXICILLIN [Concomitant]
     Active Substance: AMOXICILLIN
     Indication: Infection
     Route: 065
     Dates: start: 20120809
  19. BENAZEPRIL [Concomitant]
     Active Substance: BENAZEPRIL HYDROCHLORIDE
     Indication: Hypertension
     Route: 065
     Dates: start: 20120621, end: 20120928
  20. ALLOPURINOL [Concomitant]
     Active Substance: ALLOPURINOL
     Indication: Gout
     Route: 065
     Dates: start: 20120618, end: 20120730
  21. VITAMIN D [Concomitant]
     Active Substance: VITAMIN D NOS
     Indication: Routine health maintenance
     Route: 065
     Dates: start: 2017
  22. NABUMETONE [Concomitant]
     Active Substance: NABUMETONE
  23. ROPINIROLE [Concomitant]
     Active Substance: ROPINIROLE
  24. CEPHALEXIN [Concomitant]
     Active Substance: CEPHALEXIN
  25. CIPROFLOXACIN [Concomitant]
     Active Substance: CIPROFLOXACIN
  26. ACYCLOVIR [Concomitant]
     Active Substance: ACYCLOVIR
  27. FENTANYL [Concomitant]
     Active Substance: FENTANYL
  28. METOPROLOL [Concomitant]
     Active Substance: METOPROLOL
  29. BENEMID [Concomitant]
     Active Substance: PROBENECID
  30. BENZONATATE [Concomitant]
     Active Substance: BENZONATATE
  31. BISACODYL [Concomitant]
     Active Substance: BISACODYL
  32. EPOETIN ALFA [Concomitant]
     Active Substance: ERYTHROPOIETIN
  33. HYDRALAZINE [Concomitant]
     Active Substance: HYDRALAZINE HYDROCHLORIDE
  34. MORPHINE [Concomitant]
     Active Substance: MORPHINE
  35. ZOFRAN [Concomitant]
     Active Substance: ONDANSETRON HYDROCHLORIDE
  36. RESTORIL [Concomitant]
     Active Substance: TEMAZEPAM
  37. FAMOTIDINE [Concomitant]
     Active Substance: FAMOTIDINE

REACTIONS (7)
  - Chronic kidney disease [Not Recovered/Not Resolved]
  - Acute kidney injury [Unknown]
  - Renal failure [Unknown]
  - Hyperparathyroidism secondary [Unknown]
  - Renal injury [Unknown]
  - Nephrogenic anaemia [Unknown]
  - Rebound acid hypersecretion [Unknown]

NARRATIVE: CASE EVENT DATE: 20141223
